FAERS Safety Report 8788082 (Version 1)
Quarter: 2012Q4

REPORT INFORMATION
  Report Type: 
  Country: US (occurrence: US)
  Receive Date: 20120914
  Receipt Date: 20120914
  Transmission Date: 20130627
  Serious: No
  Sender: FDA-Public Use
  Company Number: PHEH2011US013244

PATIENT
  Sex: Female

DRUGS (9)
  1. TASIGNA [Suspect]
     Dosage: 400 mg, daily
     Route: 048
  2. PRAVASTATIN [Concomitant]
  3. SIMVASTATIN [Concomitant]
  4. ALBUTEROL [Concomitant]
  5. BENAZEPRIL [Concomitant]
  6. ATENOLOL [Concomitant]
  7. LEVOTHROID [Concomitant]
  8. FOLIC ACID [Concomitant]
  9. VITAMIN B12 [Concomitant]

REACTIONS (2)
  - Rash [Unknown]
  - Alopecia [Unknown]
